FAERS Safety Report 9153385 (Version 1)
Quarter: 2013Q1

REPORT INFORMATION
  Report Type: Spontaneous
  Country: DK (occurrence: None)
  Receive Date: 20130204
  Receipt Date: 20130204
  Transmission Date: 20140127
  Serious: Yes (Life-Threatening)
  Sender: FDA-Public Use
  Company Number: 2013MA000778

PATIENT
  Age: 11 Year
  Sex: Male

DRUGS (11)
  1. IBUPROFEN [Suspect]
     Indication: BODY TEMPERATURE INCREASED
     Route: 048
     Dates: start: 20120920, end: 20120927
  2. IBUPROFEN [Suspect]
     Indication: OROPHARYNGEAL PAIN
     Route: 048
     Dates: start: 20120920, end: 20120927
  3. IBUPROFEN [Suspect]
     Route: 048
     Dates: start: 20120920, end: 20120927
  4. ACYCLOVIR [Suspect]
  5. CALPOL [Concomitant]
  6. CELLUVISC [Concomitant]
  7. LACRI-LUBE [Concomitant]
  8. CETRIZIN [Concomitant]
  9. GABAPENTIN [Concomitant]
  10. PREDNISOLONE [Concomitant]
  11. DICLOFENAC SODIUM EXTENDED-RELEASE [Suspect]
     Route: 042

REACTIONS (5)
  - Oropharyngeal pain [None]
  - Toxic epidermal necrolysis [None]
  - Medication error [None]
  - Condition aggravated [None]
  - Eye disorder [None]
